FAERS Safety Report 5933398-3 (Version None)
Quarter: 2008Q4

REPORT INFORMATION
  Report Type: 
  Country: None (occurrence: None)
  Receive Date: 20081023
  Receipt Date: 20081010
  Transmission Date: 20090506
  Serious: Yes (Other)
  Sender: FDA-Public Use
  Company Number: 234797J08USA

PATIENT
  Age: 52 Year
  Sex: Female

DRUGS (2)
  1. REBIF [Suspect]
     Indication: MULTIPLE SCLEROSIS
     Dosage: NOT REPROTED, NOT REPORTED, NOT REPORTED
     Dates: end: 20071201
  2. UNSPECIFIED MEDICATION(ALL OTHER THERAPEUTIC PRODUCTS) [Concomitant]

REACTIONS (5)
  - HYPOTHYROIDISM [None]
  - PARASITIC GASTROENTERITIS [None]
  - PITUITARY TUMOUR [None]
  - THYROID CYST [None]
  - THYROID NEOPLASM [None]
